FAERS Safety Report 15298948 (Version 2)
Quarter: 2018Q4

REPORT INFORMATION
  Report Type: Spontaneous
  Country: DE (occurrence: DE)
  Receive Date: 20180821
  Receipt Date: 20181010
  Transmission Date: 20190204
  Serious: Yes (Hospitalization, Other)
  Sender: FDA-Public Use
  Company Number: DE-CELLTRION INC.-2018DE021925

PATIENT

DRUGS (6)
  1. PREDNISOLONE. [Suspect]
     Active Substance: PREDNISOLONE
     Indication: AUTOIMMUNE COLITIS
     Dosage: 5 MG, DAILY
     Route: 065
     Dates: start: 2017
  2. INFLIXIMAB (UNKNOWN) [Suspect]
     Active Substance: INFLIXIMAB
     Indication: AUTOIMMUNE COLITIS
     Dosage: TWO DOSES AT 5MG/KG
     Route: 065
     Dates: start: 2017, end: 2017
  3. INFLIXIMAB (UNKNOWN) [Suspect]
     Active Substance: INFLIXIMAB
     Dosage: UNK, THIRD INFUSION
     Route: 065
     Dates: start: 201712
  4. INFLIXIMAB (UNKNOWN) [Suspect]
     Active Substance: INFLIXIMAB
     Indication: COLITIS
     Dosage: 5 MG/KG
     Route: 065
  5. NIVOLUMAB [Suspect]
     Active Substance: NIVOLUMAB
     Indication: METASTATIC MALIGNANT MELANOMA
     Dosage: 3 MG/KG, 2 WEEK
     Route: 065
     Dates: start: 2016
  6. METHYLPREDNISOLONE. [Concomitant]
     Active Substance: METHYLPREDNISOLONE
     Indication: COLITIS
     Dosage: 2 MG/KG

REACTIONS (5)
  - Off label use [Unknown]
  - Autoimmune colitis [Recovered/Resolved]
  - Hyponatraemia [Unknown]
  - Pulmonary nocardiosis [Recovered/Resolved]
  - Cutaneous nocardiosis [Recovered/Resolved]

NARRATIVE: CASE EVENT DATE: 201707
